FAERS Safety Report 6198974-4 (Version None)
Quarter: 2009Q2

REPORT INFORMATION
  Report Type: 
  Country: None (occurrence: None)
  Receive Date: 20090520
  Receipt Date: 20090520
  Transmission Date: 20091009
  Serious: Yes (Disabling)
  Sender: FDA-Public Use
  Company Number: None

PATIENT
  Age: 34 Year
  Sex: Female
  Weight: 60.782 kg

DRUGS (1)
  1. SEPTOCAINE [Suspect]
     Indication: ANAESTHESIA
     Dosage: GIVEN SEVERAL SHOTS IN MOUTH 6 SHOUTS OTHER
     Route: 050
     Dates: start: 20090423, end: 20090423

REACTIONS (5)
  - FACIAL PAIN [None]
  - HYPOAESTHESIA FACIAL [None]
  - HYPOAESTHESIA ORAL [None]
  - LIP PAIN [None]
  - NASAL DISCOMFORT [None]
